FAERS Safety Report 5743594-6 (Version None)
Quarter: 2008Q2

REPORT INFORMATION
  Report Type: 
  Country: None (occurrence: None)
  Receive Date: 20080520
  Receipt Date: 20080516
  Transmission Date: 20081010
  Serious: Yes (Death, Hospitalization)
  Sender: FDA-Public Use
  Company Number: HQWYE889020APR06

PATIENT
  Sex: Male
  Weight: 61.3 kg

DRUGS (7)
  1. TEMSIROLIMUS [Suspect]
     Indication: MANTLE CELL LYMPHOMA
     Dosage: 175 MG WK 1+2; HELD WK 3; 75 MG WK 4 +5; HELD WK 6
     Route: 065
     Dates: start: 20060310, end: 20060413
  2. DIGOXIN [Concomitant]
     Indication: ARRHYTHMIA
     Dosage: DOSE DETAILS NOT PROVIDED
     Route: 065
  3. IMODIUM [Concomitant]
     Indication: DIARRHOEA
     Dosage: DOSE DETAILS NOT PROVIDED
     Route: 065
  4. NEURONTIN [Concomitant]
     Indication: NEUROPATHY PERIPHERAL
     Dosage: DOSE DETAILS NOT PROVIDED
     Route: 065
  5. LOMOTIL [Concomitant]
     Indication: DIARRHOEA
     Dosage: DOSE DETAILS NOT PROVIDED
     Route: 065
  6. CARVEDILOL [Concomitant]
     Indication: HYPERTENSION
     Dosage: DOSE DETAILS NOT PROVIDED
     Route: 065
  7. VICODIN [Concomitant]
     Indication: PAIN
     Dosage: DOSE DETAILS NOT PROVIDED
     Route: 065

REACTIONS (4)
  - DUODENAL PERFORATION [None]
  - MALIGNANT NEOPLASM PROGRESSION [None]
  - MANTLE CELL LYMPHOMA [None]
  - PLEURAL EFFUSION [None]
